FAERS Safety Report 9860506 (Version 2)
Quarter: 2014Q2

REPORT INFORMATION
  Report Type: Spontaneous
  Country: US (occurrence: US)
  Receive Date: 20140202
  Receipt Date: 20140602
  Transmission Date: 20141212
  Serious: No
  Sender: FDA-Public Use
  Company Number: US-009507513-1312USA000530

PATIENT
  Age: 85 Year
  Sex: 0
  Weight: 77.98 kg

DRUGS (5)
  1. MIRALAX [Suspect]
     Indication: CONSTIPATION
     Dosage: UNK, UNKNOWN
     Route: 048
     Dates: start: 201306, end: 20131123
  2. TYLENOL [Concomitant]
     Indication: ARTHRALGIA
     Dosage: UNK, UNKNOWN
  3. COUMADIN [Concomitant]
     Indication: THROMBOSIS
     Dosage: UNK, UNKNOWN
  4. ENSURE [Concomitant]
     Indication: WEIGHT DECREASED
     Dosage: UNK, UNKNOWN
  5. FERROUS SULFATE [Concomitant]
     Indication: BLOOD IRON DECREASED
     Dosage: UNK, UNKNOWN

REACTIONS (2)
  - Faecal incontinence [Unknown]
  - Diarrhoea [Unknown]
